FAERS Safety Report 7438659-7 (Version None)
Quarter: 2011Q2

REPORT INFORMATION
  Report Type: 
  Country: None (occurrence: None)
  Receive Date: 20110426
  Receipt Date: 20110413
  Transmission Date: 20111010
  Serious: Yes (Other)
  Sender: FDA-Public Use
  Company Number: IT-BAYER-2011-032310

PATIENT
  Age: 63 Year
  Sex: Male

DRUGS (11)
  1. LASIX [Concomitant]
     Dosage: UNK
     Route: 048
  2. NOVORAPID [Concomitant]
  3. LIMPIDEX [Concomitant]
     Route: 048
  4. GLUCOPHAGE [Concomitant]
     Dosage: UNK
     Route: 048
  5. LEVEMIR [Concomitant]
     Route: 058
  6. ASPIRIN [Suspect]
     Indication: ACUTE MYOCARDIAL INFARCTION
     Dosage: 100 MG, QD
     Route: 048
     Dates: start: 19910101
  7. LANITOP [Concomitant]
     Dosage: UNK
     Route: 048
  8. TRIATEC [Concomitant]
     Dosage: UNK
     Route: 048
  9. TORVAST [Concomitant]
     Route: 048
  10. LUVION [Concomitant]
     Route: 048
  11. NORVASC [Concomitant]
     Dosage: UNK
     Route: 048

REACTIONS (1)
  - HAEMOPTYSIS [None]
